FAERS Safety Report 6554804-X (Version None)
Quarter: 2010Q1

REPORT INFORMATION
  Report Type: 
  Country: None (occurrence: None)
  Receive Date: 20100127
  Receipt Date: 20100118
  Transmission Date: 20100710
  Serious: Yes (Hospitalization)
  Sender: FDA-Public Use
  Company Number: FR-BAXTER-2010BH001145

PATIENT
  Age: 64 Year
  Sex: Male

DRUGS (3)
  1. MESNA [Suspect]
     Indication: DRUG USE FOR UNKNOWN INDICATION
     Route: 042
     Dates: start: 20090301, end: 20090501
  2. HOLOXAN BAXTER [Suspect]
     Indication: LIPOSARCOMA RECURRENT
     Route: 042
     Dates: start: 20090301, end: 20090501
  3. ONDANSETRON HCL [Suspect]
     Indication: DRUG USE FOR UNKNOWN INDICATION
     Route: 042
     Dates: start: 20090301, end: 20090501

REACTIONS (1)
  - ENCEPHALOPATHY [None]
